FAERS Safety Report 15507974 (Version 1)
Quarter: 2018Q4

REPORT INFORMATION
  Report Type: Spontaneous
  Country: US (occurrence: US)
  Receive Date: 20181016
  Receipt Date: 20181016
  Transmission Date: 20190205
  Serious: No
  Sender: FDA-Public Use
  Company Number: US-ASTRAZENECA-2018SF35166

PATIENT
  Age: 479 Month
  Sex: Female
  Weight: 58.5 kg

DRUGS (1)
  1. FASENRA [Suspect]
     Active Substance: BENRALIZUMAB
     Indication: ASTHMA
     Route: 058
     Dates: start: 20180911

REACTIONS (2)
  - Herpes zoster [Unknown]
  - Bronchitis [Unknown]

NARRATIVE: CASE EVENT DATE: 201809
